FAERS Safety Report 7657288-3 (Version None)
Quarter: 2011Q3

REPORT INFORMATION
  Report Type: 
  Country: None (occurrence: None)
  Receive Date: 20110804
  Receipt Date: 20110728
  Transmission Date: 20111222
  Serious: Yes (Other)
  Sender: FDA-Public Use
  Company Number: PHHY2011BR68721

PATIENT
  Sex: Male

DRUGS (3)
  1. ONBREZ [Suspect]
     Dosage: 150 UG, UNK
  2. TIOTROPIUM [Suspect]
     Dosage: UNK
  3. BUDESONIDE [Suspect]

REACTIONS (2)
  - HALLUCINATION [None]
  - INSOMNIA [None]
